FAERS Safety Report 5925642-3 (Version None)
Quarter: 2008Q4

REPORT INFORMATION
  Report Type: 
  Country: None (occurrence: None)
  Receive Date: 20081016
  Receipt Date: 20081001
  Transmission Date: 20090506
  Serious: Yes (Hospitalization)
  Sender: FDA-Public Use
  Company Number: 2008S1000445

PATIENT
  Age: 49 Year
  Sex: Male

DRUGS (1)
  1. ACITRETIN [Suspect]
     Indication: PSORIASIS
     Dosage: 35 MG;QD;PO
     Route: 048
     Dates: start: 20080401

REACTIONS (1)
  - VENTRICULAR TACHYCARDIA [None]
